FAERS Safety Report 6644483-5 (Version None)
Quarter: 2010Q1

REPORT INFORMATION
  Report Type: 
  Country: None (occurrence: None)
  Receive Date: 20100319
  Receipt Date: 20100319
  Transmission Date: 20100710
  Serious: No
  Sender: FDA-Public Use
  Company Number: None

PATIENT
  Age: 73 Year
  Sex: Female
  Weight: 79.3795 kg

DRUGS (1)
  1. KAPIDEX [Suspect]
     Indication: GASTROOESOPHAGEAL REFLUX DISEASE
     Dosage: 60MG 1X DAILY ORAL
     Route: 048
     Dates: start: 20091201, end: 20100101

REACTIONS (3)
  - RASH [None]
  - SKIN DISCOLOURATION [None]
  - URTICARIA [None]
